FAERS Safety Report 9695752 (Version 1)
Quarter: 2013Q4

REPORT INFORMATION
  Report Type: Spontaneous
  Country: US (occurrence: None)
  Receive Date: 20131118
  Receipt Date: 20131118
  Transmission Date: 20140711
  Serious: No
  Sender: FDA-Public Use
  Company Number: None

PATIENT
  Age: 54 Year
  Sex: Female
  Weight: 71.67 kg

DRUGS (1)
  1. VENLAFAXINE HCL [Suspect]
     Indication: MAJOR DEPRESSION
     Route: 048
     Dates: start: 20031028, end: 20131111

REACTIONS (6)
  - Tinnitus [None]
  - Dizziness [None]
  - Nausea [None]
  - Headache [None]
  - Sinus disorder [None]
  - Product quality issue [None]
